FAERS Safety Report 13491059 (Version 1)
Quarter: 2017Q2

REPORT INFORMATION
  Report Type: Other
  Country: DE (occurrence: DE)
  Receive Date: 20170427
  Receipt Date: 20170427
  Transmission Date: 20170830
  Serious: Yes (Other)
  Sender: FDA-Public Use
  Company Number: DE-LUPIN PHARMACEUTICALS INC.-2016-01146

PATIENT
  Age: 30 Year
  Sex: Female

DRUGS (2)
  1. HALDOL [Suspect]
     Active Substance: HALOPERIDOL
     Indication: PSYCHOTIC DISORDER
     Dosage: 2 [MG/D]/DOSAGE BETWEEN 2 MG/D AND 1 MG/D
     Route: 048
  2. ZIPRASIDONE. [Suspect]
     Active Substance: ZIPRASIDONE
     Indication: PSYCHOTIC DISORDER
     Dosage: 160 [MG/D]/DOSAGE BETWEEN 160 MG/D AND 120 MG/D
     Route: 048

REACTIONS (3)
  - Psychotic disorder [Unknown]
  - Exposure during pregnancy [Unknown]
  - Bronchitis [Unknown]
